FAERS Safety Report 18575104 (Version 2)
Quarter: 2020Q4

REPORT INFORMATION
  Report Type: Spontaneous
  Country: RU (occurrence: RU)
  Receive Date: 20201203
  Receipt Date: 20201218
  Transmission Date: 20210114
  Serious: Yes (Hospitalization, Disabling)
  Sender: FDA-Public Use
  Company Number: RU-ABBVIE-20K-251-3671831-00

PATIENT
  Age: 64 Year
  Sex: Male

DRUGS (1)
  1. RINVOQ [Suspect]
     Active Substance: UPADACITINIB
     Indication: RHEUMATOID ARTHRITIS
     Route: 048
     Dates: start: 20201102, end: 20201128

REACTIONS (5)
  - COVID-19 pneumonia [Not Recovered/Not Resolved]
  - Neuritis [Recovering/Resolving]
  - Ear pain [Recovering/Resolving]
  - Facial pain [Recovering/Resolving]
  - Pancreatitis chronic [Unknown]

NARRATIVE: CASE EVENT DATE: 20201122
